FAERS Safety Report 5749710-4 (Version None)
Quarter: 2008Q2

REPORT INFORMATION
  Report Type: 
  Country: None (occurrence: None)
  Receive Date: 20080521
  Receipt Date: 20080521
  Transmission Date: 20081010
  Serious: No
  Sender: FDA-Public Use
  Company Number: None

PATIENT
  Sex: Female
  Weight: 95.8 kg

DRUGS (18)
  1. CARBOPLATIN [Suspect]
     Indication: BREAST CANCER METASTATIC
     Dosage: 202MG Q3 OUT OF 4 WEEK IV
     Route: 042
     Dates: start: 20080118, end: 20080519
  2. SYNTHROID [Concomitant]
  3. AMBIEN [Concomitant]
  4. CALCIUM [Concomitant]
  5. VITAMIN B-12 [Concomitant]
  6. MULTI-VITAMIN [Concomitant]
  7. TYLENOL [Concomitant]
  8. ATIVAN [Concomitant]
  9. ZOFRAN [Concomitant]
  10. DECADRON [Concomitant]
  11. NEUPOGEN [Concomitant]
  12. CARBOPLATIN [Concomitant]
  13. ABRAXANE [Concomitant]
  14. BEVACIZUMAB [Concomitant]
  15. ATIVAN [Concomitant]
  16. BENADRYL [Concomitant]
  17. DECADRON [Concomitant]
  18. ZOFRAN [Concomitant]

REACTIONS (7)
  - BLOOD PRESSURE DECREASED [None]
  - DYSPNOEA [None]
  - FLUSHING [None]
  - HEART RATE INCREASED [None]
  - OXYGEN SATURATION DECREASED [None]
  - PRURITUS [None]
  - RESPIRATORY RATE INCREASED [None]
